FAERS Safety Report 5230845-X (Version None)
Quarter: 2007Q1

REPORT INFORMATION
  Report Type: 
  Country: None (occurrence: None)
  Receive Date: 20070205
  Receipt Date: 20070205
  Transmission Date: 20070707
  Serious: Yes (Hospitalization)
  Sender: FDA-Public Use
  Company Number: None

PATIENT
  Sex: Female
  Weight: 52.1 kg

DRUGS (2)
  1. CETUXIMAB, 2 MG/ML; BRISTOL-MYERS SQUIBB [Suspect]
     Indication: BREAST CANCER
     Dosage: 596MG (LOADING DOSE) SINGLE DOSE IV
     Route: 042
     Dates: start: 20061017
  2. CARBOPLATIN [Suspect]
     Dosage: 244MG WEEKLY X 3 WEEKS IV
     Route: 042
     Dates: start: 20061017

REACTIONS (7)
  - DEHYDRATION [None]
  - FATIGUE [None]
  - NAUSEA [None]
  - PAIN [None]
  - PLEURAL EFFUSION [None]
  - PNEUMONIA [None]
  - VOMITING [None]
